FAERS Safety Report 5032033-9 (Version None)
Quarter: 2006Q2

REPORT INFORMATION
  Report Type: 
  Country: None (occurrence: None)
  Receive Date: 20060616
  Receipt Date: 20060612
  Transmission Date: 20061013
  Serious: Yes (Death, Life-Threatening, Other)
  Sender: FDA-Public Use
  Company Number: 200611423GDS

PATIENT
  Age: 50 Year
  Sex: Female
  Weight: 38 kg

DRUGS (51)
  1. APROTININ [Suspect]
     Indication: OESOPHAGECTOMY
     Dosage: INTRAVENOUS
     Route: 042
     Dates: start: 20060331
  2. TRANSTEC [Concomitant]
  3. PANTOZOL [Concomitant]
  4. DOLZAM [Concomitant]
  5. PERDOLAN [PARACETAMOL] [Concomitant]
  6. EMCONCOR [Concomitant]
  7. ULTIVA [Concomitant]
  8. NIMBEX [Concomitant]
  9. DIPRIVAN [Concomitant]
  10. DESFLURANE [Concomitant]
  11. CEFAZOLIN [Concomitant]
  12. CATAPRES [Concomitant]
  13. PERFUSALGAN [Concomitant]
  14. LASIX [Concomitant]
  15. TILCOTIL [Concomitant]
  16. MORPHINE [Concomitant]
  17. METOPROLOL TARTRATE [Concomitant]
  18. TRADONAL [Concomitant]
  19. NAROPIN [Concomitant]
  20. MORPHINE [Concomitant]
  21. HUMULINE REGULAR [Concomitant]
  22. LOSEC [Concomitant]
  23. DIPIDOLOR [Concomitant]
  24. CLEXANE [Concomitant]
  25. CEFACIDAL [Concomitant]
  26. CEDOCARD [Concomitant]
  27. LITICAN [Concomitant]
  28. NEXIUM [Concomitant]
  29. TAZOCIN [Concomitant]
  30. DOBUTREX [Concomitant]
  31. DIFLUCAN [Concomitant]
  32. XIGRIS [Concomitant]
  33. HARTMANN [CALC ANHYDR,KCL,NACL,NA+ LACT] [Concomitant]
  34. GLUCOSE [Concomitant]
  35. PLASMA-LYTE 56 AND DEXTROSE 5% IN PLASTIC CONTAINER [Concomitant]
  36. GEOPLASMA [Concomitant]
  37. MAGNESIUMCHLORIDE [Concomitant]
  38. DUOVENT [Concomitant]
  39. ALBUMIN (HUMAN) [Concomitant]
  40. POTASSIUM CHLORIDE [Concomitant]
  41. LEVOPHED [Concomitant]
  42. BURINEX [Concomitant]
  43. DORMICUM [MIDAZOLAM] [Concomitant]
  44. SODIUM BICARBONATE [Concomitant]
  45. MAG SULPHATE [Concomitant]
  46. SYNACTHENE [Concomitant]
  47. NEUROBION N [Concomitant]
  48. SOLUVIT NOVUM [Concomitant]
  49. VITALIPID NOVUM [Concomitant]
  50. NACL [Concomitant]
  51. POTASSIUM PHOSPHATES [Concomitant]

REACTIONS (25)
  - ACUTE RESPIRATORY DISTRESS SYNDROME [None]
  - ANAEMIA [None]
  - ARTERIOSCLEROSIS CORONARY ARTERY [None]
  - BLOOD GLUCOSE FLUCTUATION [None]
  - BONE MARROW FAILURE [None]
  - CHEST PAIN [None]
  - COAGULOPATHY [None]
  - DIALYSIS [None]
  - GENERAL PHYSICAL HEALTH DETERIORATION [None]
  - HEPATIC CONGESTION [None]
  - HYPOTENSION [None]
  - MULTI-ORGAN FAILURE [None]
  - MYOCARDITIS [None]
  - PNEUMONIA [None]
  - PNEUMONITIS [None]
  - POLYURIA [None]
  - POST PROCEDURAL COMPLICATION [None]
  - PSEUDOMONAS INFECTION [None]
  - RENAL FAILURE [None]
  - RESPIRATORY FAILURE [None]
  - SEPSIS [None]
  - SPLENIC INFARCTION [None]
  - TACHYPNOEA [None]
  - THROMBOSIS [None]
  - VASCULITIS [None]
